FAERS Safety Report 10613071 (Version 1)
Quarter: 2014Q4

REPORT INFORMATION
  Report Type: Report from Study
  Country: US (occurrence: US)
  Receive Date: 20141128
  Receipt Date: 20141128
  Transmission Date: 20150529
  Serious: Yes (Hospitalization, Other)
  Sender: FDA-Public Use
  Company Number: US-ROCHE-1497778

PATIENT
  Age: 45 Year
  Sex: Female
  Weight: 122.3 kg

DRUGS (6)
  1. BEVACIZUMAB [Suspect]
     Active Substance: BEVACIZUMAB
     Indication: BREAST CANCER
     Dosage: CYCLE = 14 DAYS (CYCLES 1-4), MOST RECENT DOSE PRIOR TO SAE WAS ON 21/MAR/2011
     Route: 042
     Dates: start: 20110117
  2. PEGFILGRASTIM [Suspect]
     Active Substance: PEGFILGRASTIM
     Indication: BREAST CANCER
     Dosage: CYCLE = 14 DAYS (CYCLES 1-4), MOST RECENT DOSE PRIOR TO SAE WAS ON 01/MAR/2011
     Route: 058
  3. PACLITAXEL. [Suspect]
     Active Substance: PACLITAXEL
     Indication: BREAST CANCER
     Dosage: CYCLE = 21 DAYS (CYCLES 5-8), MOST RECENT DOSE PRIOR TO SAE WAS ON 11/APR/2011
     Route: 042
  4. BEVACIZUMAB [Suspect]
     Active Substance: BEVACIZUMAB
     Dosage: CYCLE = 21 DAYS (CYCLES 5-8)
     Route: 042
  5. CYCLOPHOSPHAMIDE. [Suspect]
     Active Substance: CYCLOPHOSPHAMIDE
     Indication: BREAST CANCER
     Dosage: CYCLE = 14 DAYS (CYCLES 1-4), MOST RECENT DOSE PRIOR TO SAE WAS ON 28/FEB/2011
     Route: 042
  6. DOXORUBICIN [Suspect]
     Active Substance: DOXORUBICIN
     Indication: BREAST CANCER
     Dosage: CYCLE = 14 DAYS (CYCLES 1-4), MOST RECENT DOSE PRIOR TO SAE WAS ON 28/FEB/2011
     Route: 042

REACTIONS (1)
  - Pneumonitis [Recovered/Resolved with Sequelae]

NARRATIVE: CASE EVENT DATE: 20110328
